FAERS Safety Report 5982084-2 (Version None)
Quarter: 2008Q4

REPORT INFORMATION
  Report Type: 
  Country: None (occurrence: None)
  Receive Date: 20081205
  Receipt Date: 20080226
  Transmission Date: 20090506
  Serious: No
  Sender: FDA-Public Use
  Company Number: US-AMGEN-KDL267193

PATIENT
  Sex: Female

DRUGS (1)
  1. ENBREL [Suspect]
     Indication: RHEUMATOID ARTHRITIS
     Route: 058
     Dates: start: 20071101

REACTIONS (7)
  - INFLUENZA [None]
  - LACRIMATION INCREASED [None]
  - OROPHARYNGEAL PAIN [None]
  - PRURITUS [None]
  - RHEUMATOID ARTHRITIS [None]
  - SINUS CONGESTION [None]
  - SNEEZING [None]
